FAERS Safety Report 10642482 (Version 2)
Quarter: 2015Q2

REPORT INFORMATION
  Report Type: Spontaneous
  Country: SE (occurrence: SE)
  Receive Date: 20141210
  Receipt Date: 20150519
  Transmission Date: 20150821
  Serious: Yes (Death)
  Sender: FDA-Public Use
  Company Number: SE-BEH-2014046994

PATIENT
  Age: 15 Year

DRUGS (1)
  1. INTRAVENOUS IMMUNOGLOBULIN [Suspect]
     Active Substance: HUMAN IMMUNOGLOBULIN G
     Indication: HYPER IGM SYNDROME
     Route: 037

REACTIONS (4)
  - Neurological symptom [Fatal]
  - Drug ineffective [Fatal]
  - Neurological decompensation [Fatal]
  - Nerve degeneration [Fatal]
